FAERS Safety Report 5859345-0 (Version None)
Quarter: 2008Q3

REPORT INFORMATION
  Report Type: 
  Country: None (occurrence: None)
  Receive Date: 20080826
  Receipt Date: 20080826
  Transmission Date: 20090109
  Serious: Yes (Hospitalization)
  Sender: FDA-Public Use
  Company Number: None

PATIENT
  Sex: Male
  Weight: 107 kg

DRUGS (9)
  1. CYCLOPHOSPHAMIDE [Suspect]
     Dosage: 1368 MG
  2. PENTOSTATIN [Suspect]
     Dosage: 9.2 MG
  3. RITUXIMAB (MOAB C2B8 ANT CD20, CHIMERIC) [Suspect]
     Dosage: 863 MG
  4. ALDACTONE [Concomitant]
  5. BACTRIM [Concomitant]
  6. DIOVAN [Concomitant]
  7. LASIX [Concomitant]
  8. PROCRIT [Concomitant]
  9. VALTREX [Concomitant]

REACTIONS (23)
  - ABDOMINAL WALL DISORDER [None]
  - BLOOD CREATININE INCREASED [None]
  - CONDITION AGGRAVATED [None]
  - COUGH [None]
  - CREATININE RENAL CLEARANCE DECREASED [None]
  - DIABETIC NEPHROPATHY [None]
  - FLUID RETENTION [None]
  - GENERALISED OEDEMA [None]
  - GLOMERULAR FILTRATION RATE [None]
  - GLOMERULAR FILTRATION RATE ABNORMAL [None]
  - HYPONATRAEMIA [None]
  - LOCALISED OEDEMA [None]
  - NEURALGIA [None]
  - OEDEMA [None]
  - OEDEMA GENITAL [None]
  - OEDEMA PERIPHERAL [None]
  - PAIN [None]
  - PERICARDIAL EFFUSION [None]
  - PERIPHERAL SENSORY NEUROPATHY [None]
  - PITTING OEDEMA [None]
  - PLEURAL EFFUSION [None]
  - PROTEINURIA [None]
  - SCROTAL OEDEMA [None]
